FAERS Safety Report 7556648-9 (Version None)
Quarter: 2011Q2

REPORT INFORMATION
  Report Type: 
  Country: None (occurrence: None)
  Receive Date: 20110610
  Receipt Date: 20110607
  Transmission Date: 20111010
  Serious: Yes (Death)
  Sender: FDA-Public Use
  Company Number: 2011SP026642

PATIENT
  Age: 65 Year
  Sex: Male

DRUGS (4)
  1. SERTRALINE HYDROCHLORIDE [Concomitant]
  2. BROTIZOLAM [Concomitant]
  3. LEVOMEPROMAZINE [Concomitant]
  4. MIRTAZAPINE [Suspect]
     Indication: DEPRESSION
     Dosage: 15 MG;QD;PO
     Route: 048
     Dates: start: 20110217, end: 20110226

REACTIONS (1)
  - DELIRIUM [None]
